FAERS Safety Report 4361260-9 (Version None)
Quarter: 2004Q2

REPORT INFORMATION
  Report Type: 
  Country: None (occurrence: None)
  Receive Date: 20040520
  Receipt Date: 20040422
  Transmission Date: 20050107
  Serious: Yes (Life-Threatening, Hospitalization, Other)
  Sender: FDA-Public Use
  Company Number: US-GLAXOSMITHKLINE-A0508256A

PATIENT
  Age: 78 Year
  Sex: Male
  Weight: 81.8 kg

DRUGS (5)
  1. WELLBUTRIN SR [Suspect]
     Indication: DEPRESSION
     Route: 048
     Dates: start: 20020101, end: 20021212
  2. ALCOHOL [Suspect]
     Dosage: 2U PER DAY
     Route: 048
  3. ATENOLOL [Concomitant]
     Indication: HYPERTENSION
     Dosage: 25MG PER DAY
     Route: 048
     Dates: start: 19920101
  4. TRIAMTERENE AND HYDROCHLOROTHIAZIDE [Concomitant]
     Indication: HYPERTENSION
     Dosage: .5TAB PER DAY
     Route: 048
     Dates: start: 19920101
  5. PRAVACHOL [Concomitant]
     Dosage: 40MG PER DAY
     Route: 048
     Dates: start: 19920101

REACTIONS (1)
  - GRAND MAL CONVULSION [None]
